FAERS Safety Report 18101626 (Version 1)
Quarter: 2020Q3

REPORT INFORMATION
  Report Type: Report from Study
  Country: NZ (occurrence: NZ)
  Receive Date: 20200801
  Receipt Date: 20200801
  Transmission Date: 20201103
  Serious: Yes (Hospitalization, Other)
  Sender: FDA-Public Use
  Company Number: NZ-UNITED THERAPEUTICS-UNT-2020-011090

PATIENT
  Age: 8 Year
  Sex: Female
  Weight: 20.3 kg

DRUGS (13)
  1. UNITUXIN [Suspect]
     Active Substance: DINUTUXIMAB
     Dosage: 61.6 MG
     Route: 041
     Dates: start: 20200623, end: 20200626
  2. UNITUXIN [Suspect]
     Active Substance: DINUTUXIMAB
     Dosage: UNK (CYCLE 1)
     Route: 041
     Dates: start: 20200508
  3. TOPOTECAN [Suspect]
     Active Substance: TOPOTECAN HYDROCHLORIDE
     Dosage: CYCLES 1 AND 2: 1.2 MG/M2 (DAYS 1?5; FOR BSA { 0.6 M2)
     Route: 041
     Dates: start: 20200508
  4. CYCLOPHOSPHAMIDE. [Suspect]
     Active Substance: CYCLOPHOSPHAMIDE
     Dosage: CYCLES 1 AND 2: 400 MG/M2 (DAYS 1?5; FOR BSA { 0.6 M2)
     Route: 041
     Dates: start: 20200508
  5. CISPLATIN. [Suspect]
     Active Substance: CISPLATIN
     Indication: NEUROBLASTOMA
     Dosage: 159 MG
     Route: 041
     Dates: start: 20200622, end: 20200624
  6. TOPOTECAN [Suspect]
     Active Substance: TOPOTECAN HYDROCHLORIDE
     Indication: NEUROBLASTOMA
     Dosage: UNK, TOTAL DOSE ADMINISTERED OVER COURSE 1 AND 2 IS 10 MG
     Route: 041
     Dates: end: 20200605
  7. CYCLOPHOSPHAMIDE. [Suspect]
     Active Substance: CYCLOPHOSPHAMIDE
     Indication: NEUROBLASTOMA
     Dosage: TOTAL DOSE ADMINISTERED OVER COURSE 1 AND 2 IS 3310 MG
     Route: 041
     Dates: end: 20200605
  8. CISPLATIN. [Suspect]
     Active Substance: CISPLATIN
     Dosage: UNK
     Route: 041
     Dates: start: 20200508
  9. UNITUXIN [Suspect]
     Active Substance: DINUTUXIMAB
     Dosage: CYCLE 3 AND 5: 17.5 MG/M2/DOSE (DAYS 2?5)
     Route: 041
  10. CISPLATIN. [Suspect]
     Active Substance: CISPLATIN
     Dosage: CYCLE 3 AND 5: 60 MG/M2 (DAYS 1?3; FOR BSA { 0.6 M2)
     Route: 041
  11. ETOPOSIDE. [Suspect]
     Active Substance: ETOPOSIDE
     Indication: NEUROBLASTOMA
     Dosage: 525 MG
     Route: 041
     Dates: start: 20200622, end: 20200624
  12. ETOPOSIDE. [Suspect]
     Active Substance: ETOPOSIDE
     Dosage: UNK
     Route: 041
     Dates: start: 20200508
  13. ETOPOSIDE. [Suspect]
     Active Substance: ETOPOSIDE
     Dosage: CYCLE 3 AND 5: 200 MG/M2 (DAYS 1?3; FOR BSA { 0.6 M2)
     Route: 041

REACTIONS (1)
  - Chylothorax [Recovering/Resolving]

NARRATIVE: CASE EVENT DATE: 20200627
